FAERS Safety Report 21676876 (Version 2)
Quarter: 2022Q4

REPORT INFORMATION
  Report Type: Spontaneous
  Country: US (occurrence: US)
  Receive Date: 20221203
  Receipt Date: 20221207
  Transmission Date: 20230113
  Serious: No
  Sender: FDA-Public Use
  Company Number: US-002147023-NVSC2022US281189

PATIENT
  Age: 79 Year
  Sex: Female

DRUGS (2)
  1. XIIDRA [Suspect]
     Active Substance: LIFITEGRAST
     Indication: Dry eye
     Dosage: 1 GTT DRP, BID
     Route: 047
     Dates: start: 20221118, end: 20221130
  2. XIIDRA [Suspect]
     Active Substance: LIFITEGRAST
     Dosage: UNK, QD OU
     Route: 065

REACTIONS (1)
  - Chapped lips [Unknown]

NARRATIVE: CASE EVENT DATE: 20221118
